FAERS Safety Report 24531427 (Version 2)
Quarter: 2025Q2

REPORT INFORMATION
  Report Type: Report from Study
  Country: US (occurrence: US)
  Receive Date: 20241022
  Receipt Date: 20250528
  Transmission Date: 20250716
  Serious: Yes (Hospitalization)
  Sender: ROCHE
  Company Number: US-ROCHE-3450983

PATIENT
  Age: 76 Year
  Sex: Female

DRUGS (3)
  1. PULMOZYME [Suspect]
     Active Substance: DORNASE ALFA
     Indication: Bronchiectasis
     Route: 055
  2. PULMOZYME [Suspect]
     Active Substance: DORNASE ALFA
     Indication: Immunodeficiency common variable
  3. PULMOZYME [Suspect]
     Active Substance: DORNASE ALFA
     Indication: Selective IgA immunodeficiency

REACTIONS (5)
  - Off label use [Unknown]
  - Sinusitis [Recovered/Resolved]
  - Nasal congestion [Recovered/Resolved]
  - Respiratory distress [Unknown]
  - Increased viscosity of upper respiratory secretion [Unknown]
